FAERS Safety Report 18843319 (Version 2)
Quarter: 2021Q2

REPORT INFORMATION
  Report Type: Report from Study
  Country: US (occurrence: US)
  Receive Date: 20210203
  Receipt Date: 20210405
  Transmission Date: 20210717
  Serious: Yes (Other)
  Sender: FDA-Public Use
  Company Number: US-BIOGEN-2021BI00972585

PATIENT
  Sex: Female

DRUGS (1)
  1. TYSABRI [Suspect]
     Active Substance: NATALIZUMAB
     Indication: MULTIPLE SCLEROSIS
     Route: 042
     Dates: start: 20111129

REACTIONS (6)
  - Muscle spasms [Unknown]
  - Muscle fatigue [Unknown]
  - Limb discomfort [Unknown]
  - Spinal stenosis [Unknown]
  - Degenerative bone disease [Unknown]
  - Dyspnoea [Unknown]
